FAERS Safety Report 5590042-5 (Version None)
Quarter: 2007Q4

REPORT INFORMATION
  Report Type: 
  Country: None (occurrence: None)
  Receive Date: 20071212
  Receipt Date: 20070627
  Transmission Date: 20080405
  Serious: Yes (Other)
  Sender: FDA-Public Use
  Company Number: USA-2007-0028076

PATIENT
  Age: 52 Year
  Sex: Female

DRUGS (6)
  1. OXYCONTIN [Suspect]
     Indication: DRUG USE FOR UNKNOWN INDICATION
     Dosage: 150 MG, DAILY, ORAL
     Route: 048
  2. SOMA [Concomitant]
  3. KLONOPIN [Concomitant]
  4. FIORICET [Concomitant]
  5. WELLBUTRIN [Concomitant]
  6. RELAFEN [Concomitant]

REACTIONS (1)
  - OVERDOSE [None]
